FAERS Safety Report 8317440-0 (Version None)
Quarter: 2012Q2

REPORT INFORMATION
  Report Type: 
  Country: None (occurrence: None)
  Receive Date: 20120427
  Receipt Date: 20120426
  Transmission Date: 20120825
  Serious: Yes (Hospitalization, Other)
  Sender: FDA-Public Use
  Company Number: DE-ABBOTT-12P-062-0916969-00

PATIENT
  Age: 18 Year
  Weight: 70 kg

DRUGS (4)
  1. HUMIRA [Suspect]
     Indication: CROHN'S DISEASE
     Route: 058
     Dates: start: 20110829, end: 20111128
  2. CORTISONE ACETATE [Concomitant]
     Indication: PRODUCT USED FOR UNKNOWN INDICATION
     Route: 048
     Dates: end: 20110801
  3. BUDENOSID [Concomitant]
     Indication: PRODUCT USED FOR UNKNOWN INDICATION
     Dosage: LOCAL THERAPY
     Dates: end: 20110801
  4. PREDNISOLONE [Concomitant]
     Indication: PRODUCT USED FOR UNKNOWN INDICATION
     Dosage: DAILY DOSE: 60MG
     Dates: start: 20110714, end: 20110901

REACTIONS (2)
  - HODGKIN'S DISEASE STAGE II [None]
  - PHARYNGEAL CANCER STAGE UNSPECIFIED [None]
